FAERS Safety Report 18500930 (Version 1)
Quarter: 2020Q4

REPORT INFORMATION
  Report Type: Spontaneous
  Country: US (occurrence: US)
  Receive Date: 20201113
  Receipt Date: 20201113
  Transmission Date: 20210114
  Serious: Yes (Hospitalization)
  Sender: FDA-Public Use
  Company Number: US-MYLANLABS-2020M1094432

PATIENT
  Age: 69 Year
  Sex: Female

DRUGS (9)
  1. HEPARIN [Suspect]
     Active Substance: HEPARIN SODIUM
     Indication: DEEP VEIN THROMBOSIS
  2. HEPARIN [Suspect]
     Active Substance: HEPARIN SODIUM
     Indication: PULMONARY EMBOLISM
     Dosage: UNK
     Route: 042
  3. BIVALIRUDIN. [Suspect]
     Active Substance: BIVALIRUDIN
     Indication: HEPARIN-INDUCED THROMBOCYTOPENIA
     Dosage: UNK
     Route: 065
  4. ALTEPLASE. [Suspect]
     Active Substance: ALTEPLASE
     Dosage: FOLLOWED BY 40 MG OVER 2 HOURS
     Route: 065
  5. COUMADIN [Concomitant]
     Active Substance: WARFARIN SODIUM
     Indication: DEEP VEIN THROMBOSIS
  6. ENOXAPARIN [Suspect]
     Active Substance: ENOXAPARIN
     Indication: THROMBOSIS PROPHYLAXIS
     Dosage: 30 MILLIGRAM, BID
     Route: 058
  7. COUMADIN [Concomitant]
     Active Substance: WARFARIN SODIUM
     Indication: PULMONARY EMBOLISM
     Dosage: 5 MILLIGRAM
  8. ALTEPLASE. [Suspect]
     Active Substance: ALTEPLASE
     Indication: HEPARIN-INDUCED THROMBOCYTOPENIA
     Dosage: 10 MG SLOW BOLUS OVER 20 MINUTES
     Route: 065
  9. ENOXAPARIN [Suspect]
     Active Substance: ENOXAPARIN
     Indication: DEEP VEIN THROMBOSIS

REACTIONS (5)
  - Heparin-induced thrombocytopenia [Recovered/Resolved]
  - Haemodynamic instability [Recovered/Resolved]
  - Off label use [Unknown]
  - Atrial fibrillation [Recovered/Resolved]
  - Right ventricular failure [Recovered/Resolved]
